FAERS Safety Report 9045954 (Version 1)
Quarter: 2013Q1

REPORT INFORMATION
  Report Type: Report from Study
  Country: US (occurrence: US)
  Receive Date: 20130201
  Receipt Date: 20130201
  Transmission Date: 20140127
  Serious: No
  Sender: FDA-Public Use
  Company Number: US-ABBOTT-12P-163-1019188-00

PATIENT
  Sex: Female
  Weight: 72.64 kg

DRUGS (4)
  1. HUMIRA [Suspect]
     Indication: CROHN^S DISEASE
     Route: 058
     Dates: start: 201207, end: 201209
  2. HUMIRA [Suspect]
     Route: 058
     Dates: start: 201210, end: 201211
  3. HYOSCYAMINE [Concomitant]
     Indication: CROHN^S DISEASE
  4. LIALDA [Concomitant]
     Indication: CROHN^S DISEASE
     Dates: start: 201211

REACTIONS (2)
  - Drug ineffective [Not Recovered/Not Resolved]
  - Alopecia [Not Recovered/Not Resolved]
